FAERS Safety Report 8010282-5 (Version None)
Quarter: 2011Q4

REPORT INFORMATION
  Report Type: 
  Country: None (occurrence: None)
  Receive Date: 20111228
  Receipt Date: 20111220
  Transmission Date: 20120403
  Serious: Yes (Hospitalization)
  Sender: FDA-Public Use
  Company Number: DE-JNJFOC-20111111913

PATIENT
  Age: 20 Year
  Sex: Male

DRUGS (6)
  1. REMICADE [Suspect]
     Dosage: SECOND INFUSION
     Route: 042
     Dates: start: 20111115
  2. PREDNISOLONE [Concomitant]
     Route: 065
  3. MESALAMINE [Concomitant]
     Route: 065
  4. REMICADE [Suspect]
     Indication: COLITIS ULCERATIVE
     Route: 042
     Dates: start: 20111028
  5. MERCAPTOPURINE [Concomitant]
     Route: 065
  6. VANCOMYCIN HYCHLORIDE [Concomitant]
     Route: 065

REACTIONS (3)
  - LEUKOPENIA [None]
  - PNEUMOTHORAX [None]
  - HYPOCHROMIC ANAEMIA [None]
